FAERS Safety Report 6622254-3 (Version None)
Quarter: 2010Q1

REPORT INFORMATION
  Report Type: 
  Country: None (occurrence: None)
  Receive Date: 20100305
  Receipt Date: 20100217
  Transmission Date: 20100710
  Serious: Yes (Death)
  Sender: FDA-Public Use
  Company Number: PI-04551

PATIENT
  Age: 35 Year
  Sex: Female
  Weight: 45 kg

DRUGS (2)
  1. 2%CHG / 70% IPA [Suspect]
     Dosage: ONE, TOPICAL
     Route: 061
     Dates: start: 20091221
  2. VOLPEX [Concomitant]

REACTIONS (4)
  - ANAPHYLACTIC REACTION [None]
  - DYSGEUSIA [None]
  - EXPOSURE TO CONTAMINATED DEVICE [None]
  - RESUSCITATION [None]
